FAERS Safety Report 10026214 (Version 2)
Quarter: 2014Q1

REPORT INFORMATION
  Report Type: Spontaneous
  Country: US (occurrence: US)
  Receive Date: 20140320
  Receipt Date: 20140320
  Transmission Date: 20141002
  Serious: No
  Sender: FDA-Public Use
  Company Number: US-ALLERGAN-1318250US

PATIENT
  Age: 87 Year
  Sex: Female

DRUGS (6)
  1. LUMIGAN 0.01% [Suspect]
     Indication: GLAUCOMA
     Dosage: 1 DROP IN EACH EYE, AT BEDTIME
     Route: 047
     Dates: end: 201310
  2. TOPROL [Concomitant]
     Indication: HYPERTENSION
     Dosage: UNK
  3. ZIOPTAN [Concomitant]
     Indication: GLAUCOMA
     Dosage: 1 DROP IN EACH EYE AT 8AM
     Route: 047
  4. TIMOPTIC [Concomitant]
     Indication: GLAUCOMA
     Dosage: 1 DROP IN EACH EYE AT 11PM
     Route: 047
  5. COUMADIN [Concomitant]
     Indication: DEEP VEIN THROMBOSIS
     Dosage: UNK
  6. COUMADIN [Concomitant]
     Indication: PULMONARY EMBOLISM

REACTIONS (7)
  - Skin tightness [Unknown]
  - Erythema [Unknown]
  - Eye discharge [Unknown]
  - Eye pruritus [Unknown]
  - Erythema of eyelid [Unknown]
  - Ocular hyperaemia [Unknown]
  - Liquid product physical issue [Unknown]
